FAERS Safety Report 19062408 (Version 1)
Quarter: 2021Q1

REPORT INFORMATION
  Report Type: Spontaneous
  Country: US (occurrence: US)
  Receive Date: 20210326
  Receipt Date: 20210326
  Transmission Date: 20210420
  Serious: Yes (Hospitalization)
  Sender: FDA-Public Use
  Company Number: US-CADILA HEALTHCARE LIMITED-US-ZYDUS-063357

PATIENT

DRUGS (1)
  1. BUPROPION. [Suspect]
     Active Substance: BUPROPION
     Indication: SUICIDE ATTEMPT
     Dosage: 2700 MILLIGRAM,IN TOTAL

REACTIONS (6)
  - Electrocardiogram QT prolonged [Recovered/Resolved]
  - Chest discomfort [Recovered/Resolved]
  - Nervous system disorder [Recovered/Resolved]
  - Status epilepticus [Recovered/Resolved]
  - Hypotension [Recovered/Resolved]
  - Intentional overdose [Recovered/Resolved]
